FAERS Safety Report 5804078-X (Version None)
Quarter: 2008Q3

REPORT INFORMATION
  Report Type: 
  Country: None (occurrence: None)
  Receive Date: 20080709
  Receipt Date: 20080708
  Transmission Date: 20090109
  Serious: Yes (Hospitalization)
  Sender: FDA-Public Use
  Company Number: CZ-RANBAXY-2008RR-16242

PATIENT

DRUGS (7)
  1. ZANOCIN [Suspect]
     Indication: ERYSIPELAS
     Dosage: 800 MG, QD
     Route: 048
     Dates: start: 20080604, end: 20080611
  2. FUROSEMIDE FORTE [Concomitant]
  3. ATROVENT SPR. [Concomitant]
  4. AFONILUM [Concomitant]
  5. PRO-ROXICAM [Concomitant]
  6. TRAMAL [Concomitant]
     Dosage: UNK
  7. OITHIADEN [Concomitant]

REACTIONS (1)
  - IRRITABLE BOWEL SYNDROME [None]
